FAERS Safety Report 14534408 (Version 1)
Quarter: 2018Q1

REPORT INFORMATION
  Report Type: Spontaneous
  Country: CZ (occurrence: CZ)
  Receive Date: 20180215
  Receipt Date: 20180215
  Transmission Date: 20180509
  Serious: Yes (Hospitalization)
  Sender: FDA-Public Use
  Company Number: CZ-ROCHE-2074747

PATIENT

DRUGS (4)
  1. PRADAXA [Concomitant]
     Active Substance: DABIGATRAN ETEXILATE MESYLATE
     Indication: CEREBROVASCULAR ACCIDENT PROPHYLAXIS
  2. PRAXBIND [Concomitant]
     Active Substance: IDARUCIZUMAB
  3. ACTILYSE [Suspect]
     Active Substance: ALTEPLASE
     Indication: CEREBROVASCULAR ACCIDENT
     Route: 042
  4. PRADAXA [Concomitant]
     Active Substance: DABIGATRAN ETEXILATE MESYLATE
     Indication: ATRIAL FIBRILLATION

REACTIONS (2)
  - Hemiparesis [Unknown]
  - Ischaemic stroke [Unknown]
